FAERS Safety Report 4402167-8 (Version None)
Quarter: 2004Q3

REPORT INFORMATION
  Report Type: 
  Country: None (occurrence: None)
  Receive Date: 20040715
  Receipt Date: 20040709
  Transmission Date: 20050211
  Serious: Yes (Hospitalization, Other)
  Sender: FDA-Public Use
  Company Number: GBWYE735130APR04

PATIENT
  Age: 80 Year
  Sex: Female

DRUGS (5)
  1. ADVIL [Suspect]
     Indication: ARTHRALGIA
     Dosage: 400 MG 1X PER 1 DAY
  2. ADVIL [Suspect]
     Indication: LOCALISED OSTEOARTHRITIS
     Dosage: 400 MG 1X PER 1 DAY
  3. LEVOBUNOLOL (LEVOBUNOLOL) [Concomitant]
  4. LATANOPROST [Concomitant]
  5. DORZOLAMIDE (DORZOLAMIDE) [Concomitant]

REACTIONS (8)
  - ACUTE GENERALISED EXANTHEMATOUS PUSTULOSIS [None]
  - DISEASE RECURRENCE [None]
  - LYMPHOCYTIC INFILTRATION [None]
  - NEUTROPHIL COUNT INCREASED [None]
  - PSORIASIS [None]
  - RASH PRURITIC [None]
  - SKIN DESQUAMATION [None]
  - WHITE BLOOD CELL COUNT INCREASED [None]
